FAERS Safety Report 5481735-9 (Version None)
Quarter: 2007Q4

REPORT INFORMATION
  Report Type: 
  Country: None (occurrence: None)
  Receive Date: 20071010
  Receipt Date: 20071008
  Transmission Date: 20080405
  Serious: Yes (Other)
  Sender: FDA-Public Use
  Company Number: US-SHR-US-2006-029170

PATIENT
  Age: 41 Year
  Sex: Female

DRUGS (2)
  1. BETASERON [Suspect]
     Indication: MULTIPLE SCLEROSIS
     Dosage: 8 MIU, EVERY 2D
     Route: 058
     Dates: start: 20020624
  2. DEPAKOTE [Suspect]
     Indication: BIPOLAR DISORDER
     Route: 048
     Dates: end: 20060901

REACTIONS (4)
  - BIPOLAR DISORDER [None]
  - DIARRHOEA [None]
  - OVERDOSE [None]
  - VOMITING [None]
